FAERS Safety Report 12750780 (Version 1)
Quarter: 2016Q3

REPORT INFORMATION
  Report Type: Spontaneous
  Country: US (occurrence: US)
  Receive Date: 20160916
  Receipt Date: 20160916
  Transmission Date: 20161109
  Serious: Yes (Disabling)
  Sender: FDA-Public Use
  Company Number: None

PATIENT
  Age: 45 Year
  Sex: Female
  Weight: 58.05 kg

DRUGS (5)
  1. OMEGA OIL [Concomitant]
  2. SEROQUEL [Concomitant]
     Active Substance: QUETIAPINE FUMARATE
  3. LEVOFLOXACIN 750 MG [Suspect]
     Active Substance: LEVOFLOXACIN
     Indication: PNEUMONIA
     Route: 048
     Dates: start: 20151229, end: 20160102
  4. WOMEN^S VITAMIN [Concomitant]
  5. VITAMIN D [Concomitant]
     Active Substance: CHOLECALCIFEROL

REACTIONS (12)
  - Muscle tightness [None]
  - Discomfort [None]
  - Burning sensation [None]
  - Fatigue [None]
  - Neuropathy peripheral [None]
  - Feeling abnormal [None]
  - Pain [None]
  - Pain in extremity [None]
  - Skin discolouration [None]
  - Gait disturbance [None]
  - Cardiovascular disorder [None]
  - Muscle fatigue [None]

NARRATIVE: CASE EVENT DATE: 20160101
